FAERS Safety Report 12614896 (Version 1)
Quarter: 2016Q3

REPORT INFORMATION
  Report Type: Spontaneous
  Country: US (occurrence: US)
  Receive Date: 20160802
  Receipt Date: 20160802
  Transmission Date: 20161109
  Serious: No
  Sender: FDA-Public Use
  Company Number: US-PERRIGO-15US006255

PATIENT
  Age: 21 Year
  Sex: Male
  Weight: 77.98 kg

DRUGS (1)
  1. MINOXIDIL. [Suspect]
     Active Substance: MINOXIDIL
     Indication: ALOPECIA
     Dosage: 1 ML, BID
     Route: 061
     Dates: start: 201505, end: 201505

REACTIONS (1)
  - Seborrhoea [Recovered/Resolved]

NARRATIVE: CASE EVENT DATE: 201505
